FAERS Safety Report 9026993 (Version 1)
Quarter: 2013Q1

REPORT INFORMATION
  Report Type: Spontaneous
  Country: GB (occurrence: GB)
  Receive Date: 20130123
  Receipt Date: 20130123
  Transmission Date: 20140127
  Serious: Yes (Other)
  Sender: FDA-Public Use
  Company Number: GB-PFIZER INC-2013027524

PATIENT
  Age: 22 Year
  Sex: Female
  Weight: 66.22 kg

DRUGS (2)
  1. LYRICA [Suspect]
     Indication: VESTIBULITIS
     Dosage: 150 MG, 1X/DAY
     Route: 048
     Dates: start: 201107, end: 201212
  2. OMEPRAZOLE [Concomitant]
     Dosage: UNK

REACTIONS (3)
  - Fatigue [Recovered/Resolved]
  - Abdominal pain [Not Recovered/Not Resolved]
  - Immunosuppression [Not Recovered/Not Resolved]
